FAERS Safety Report 13351778 (Version 1)
Quarter: 2017Q1

REPORT INFORMATION
  Report Type: Spontaneous
  Country: US (occurrence: US)
  Receive Date: 20170320
  Receipt Date: 20170320
  Transmission Date: 20170429
  Serious: Yes (Hospitalization)
  Sender: FDA-Public Use
  Company Number: US-PFIZER INC-2017115389

PATIENT
  Age: 35 Year
  Sex: Female

DRUGS (2)
  1. IMMUNOGLOBULIN /00025201/ [Suspect]
     Active Substance: HUMAN IMMUNOGLOBULIN G
     Dosage: UNK
     Route: 042
  2. METHYLPREDNISOLONE SODIUM SUCCINATE. [Suspect]
     Active Substance: METHYLPREDNISOLONE SODIUM SUCCINATE
     Dosage: 5 G, UNK
     Route: 042

REACTIONS (4)
  - Respiratory failure [Unknown]
  - Autonomic nervous system imbalance [Unknown]
  - Tachycardia [Unknown]
  - Tachypnoea [Unknown]
